FAERS Safety Report 10646920 (Version 1)
Quarter: 2014Q4

REPORT INFORMATION
  Report Type: Spontaneous
  Country: FR (occurrence: FR)
  Receive Date: 20141211
  Receipt Date: 20141211
  Transmission Date: 20150529
  Serious: Yes (Other)
  Sender: FDA-Public Use
  Company Number: FR-BIAL, PORTELA + CA S.A.-BIAL-02732

PATIENT
  Sex: Female

DRUGS (3)
  1. ZEBINIX (ESLICARBAZEPINE ACETATE) [Suspect]
     Active Substance: ESLICARBAZEPINE ACETATE
     Indication: PRODUCT USED FOR UNKNOWN INDICATION
     Dosage: UNK
     Route: 048
  2. TEGRETOL [Suspect]
     Active Substance: CARBAMAZEPINE
     Indication: PRODUCT USED FOR UNKNOWN INDICATION
     Dosage: UNK
  3. MICROPAKINE [Concomitant]
     Active Substance: VALPROIC ACID
     Dosage: UNK

REACTIONS (2)
  - Hyponatraemia [Unknown]
  - Thrombocytopenia [Unknown]
